FAERS Safety Report 5372702-4 (Version None)
Quarter: 2007Q2

REPORT INFORMATION
  Report Type: 
  Country: None (occurrence: None)
  Receive Date: 20070619
  Receipt Date: 20060810
  Transmission Date: 20071010
  Serious: Yes (Other)
  Sender: FDA-Public Use
  Company Number: WAES 0608USA02175

PATIENT
  Sex: Female

DRUGS (1)
  1. COZAAR [Suspect]
     Indication: HYPERTENSION
     Dosage: PO
     Route: 048

REACTIONS (9)
  - ANGINA PECTORIS [None]
  - ARTHRITIS [None]
  - CONSTIPATION [None]
  - DIABETES MELLITUS [None]
  - HYPERTONIC BLADDER [None]
  - INSOMNIA [None]
  - MYOCARDIAL INFARCTION [None]
  - RESTLESS LEGS SYNDROME [None]
  - WEIGHT CONTROL [None]
